FAERS Safety Report 24175723 (Version 3)
Quarter: 2025Q2

REPORT INFORMATION
  Report Type: Spontaneous
  Country: US (occurrence: US)
  Receive Date: 20240805
  Receipt Date: 20250506
  Transmission Date: 20250716
  Serious: No
  Sender: AMGEN
  Company Number: US-AMGEN-USASP2024152699

PATIENT
  Age: 69 Year
  Sex: Male

DRUGS (20)
  1. OTEZLA [Suspect]
     Active Substance: APREMILAST
     Indication: Psoriasis
     Dosage: 30 MILLIGRAM, BID
     Route: 048
     Dates: start: 20220921
  2. FUROSEMIDE [Concomitant]
     Active Substance: FUROSEMIDE
  3. CETIRIZINE [Concomitant]
     Active Substance: CETIRIZINE HYDROCHLORIDE
  4. CLARITIN [Concomitant]
     Active Substance: LORATADINE
  5. VITAMIN D [Concomitant]
     Active Substance: VITAMIN D NOS
  6. AMIODARONE HYDROCHLORIDE [Concomitant]
     Active Substance: AMIODARONE HYDROCHLORIDE
  7. BUPROPION [Concomitant]
     Active Substance: BUPROPION
  8. DEXLANSOPRAZOLE [Concomitant]
     Active Substance: DEXLANSOPRAZOLE
  9. WARFARIN SODIUM [Concomitant]
     Active Substance: WARFARIN SODIUM
  10. METOPROLOL [Concomitant]
     Active Substance: METOPROLOL
  11. JARDIANCE [Concomitant]
     Active Substance: EMPAGLIFLOZIN
  12. HYDROCORTISONE [Concomitant]
     Active Substance: HYDROCORTISONE
  13. FOLIC ACID [Concomitant]
     Active Substance: FOLIC ACID
  14. SOLU-MEDROL [Concomitant]
     Active Substance: METHYLPREDNISOLONE SODIUM SUCCINATE
  15. FLUCONAZOLE [Concomitant]
     Active Substance: FLUCONAZOLE
  16. ENTRESTO [Concomitant]
     Active Substance: SACUBITRIL\VALSARTAN
  17. DOXEPIN [Concomitant]
     Active Substance: DOXEPIN
  18. LEVOTHYROXINE SODIUM [Concomitant]
     Active Substance: LEVOTHYROXINE SODIUM
  19. DICYCLOMINE [Concomitant]
     Active Substance: DICYCLOMINE HYDROCHLORIDE
  20. CLOPIDOGREL [Concomitant]
     Active Substance: CLOPIDOGREL BISULFATE

REACTIONS (3)
  - Psoriasis [Not Recovered/Not Resolved]
  - Discomfort [Not Recovered/Not Resolved]
  - Therapeutic product effect incomplete [Not Recovered/Not Resolved]

NARRATIVE: CASE EVENT DATE: 20240710
